FAERS Safety Report 17155870 (Version 2)
Quarter: 2020Q4

REPORT INFORMATION
  Report Type: Spontaneous
  Country: US (occurrence: US)
  Receive Date: 20191215
  Receipt Date: 20201218
  Transmission Date: 20210113
  Serious: Yes (Other)
  Sender: FDA-Public Use
  Company Number: US-AMGEN-USASP2019206098

PATIENT
  Sex: Female

DRUGS (17)
  1. HUMIRA [Suspect]
     Active Substance: ADALIMUMAB
     Indication: RHEUMATOID ARTHRITIS
     Dosage: UNK
     Route: 058
     Dates: start: 2009, end: 2010
  2. BIOFLEX [Concomitant]
     Active Substance: GLUCOSAMINE SULFATE
     Indication: OSTEOARTHRITIS
  3. RINVOQ [Suspect]
     Active Substance: UPADACITINIB
     Indication: RHEUMATOID ARTHRITIS
     Dosage: 15 MILLIGRAM, QD
     Route: 048
     Dates: start: 201911
  4. CAYENNE [CAPSICUM ANNUUM FRUIT] [Concomitant]
     Dosage: UNK
  5. METHYLSULFONYLMETHANE [Concomitant]
     Active Substance: DIMETHYL SULFONE
  6. ENBREL [Suspect]
     Active Substance: ETANERCEPT
     Indication: RHEUMATOID ARTHRITIS
     Dosage: UNK
     Route: 065
  7. BRIMONIDINE [Concomitant]
     Active Substance: BRIMONIDINE TARTRATE
     Indication: GLAUCOMA
     Dosage: UNK
  8. VITAMIN D3 [Concomitant]
     Active Substance: CHOLECALCIFEROL
  9. ALUDROX [ALUMINIUM HYDROXIDE;MAGNESIUM HYDROXIDE] [Concomitant]
     Dosage: UNK
  10. MAGNESIUM CHLORIDE. [Concomitant]
     Active Substance: MAGNESIUM CHLORIDE
  11. RINVOQ [Suspect]
     Active Substance: UPADACITINIB
     Dosage: 15 MILLIGRAM, QD
     Route: 048
  12. VITAMIN B [Concomitant]
     Active Substance: VITAMIN B
  13. ADVIL [Concomitant]
     Active Substance: IBUPROFEN
  14. TURMERIC [Concomitant]
     Active Substance: HERBALS\TURMERIC
  15. XELJANZ [Suspect]
     Active Substance: TOFACITINIB CITRATE
     Indication: PRODUCT USED FOR UNKNOWN INDICATION
     Dosage: UNK
     Route: 065
  16. METHOTREXATE. [Concomitant]
     Active Substance: METHOTREXATE
     Dosage: UNK
     Dates: start: 2009
  17. BUTCHERS BROOM [Concomitant]

REACTIONS (15)
  - Oropharyngeal pain [Recovered/Resolved]
  - Freezing phenomenon [Not Recovered/Not Resolved]
  - Tendon rupture [Unknown]
  - Gait disturbance [Not Recovered/Not Resolved]
  - Influenza like illness [Recovered/Resolved]
  - Ear pain [Recovered/Resolved]
  - Neuropathy peripheral [Not Recovered/Not Resolved]
  - Hypoaesthesia [Unknown]
  - Drug ineffective [Unknown]
  - Gait inability [Not Recovered/Not Resolved]
  - Hereditary motor and sensory neuropathy [Not Recovered/Not Resolved]
  - Glaucoma [Not Recovered/Not Resolved]
  - Rheumatoid nodule [Recovered/Resolved]
  - Rheumatoid arthritis [Not Recovered/Not Resolved]
  - Weight increased [Unknown]

NARRATIVE: CASE EVENT DATE: 2018
